FAERS Safety Report 19138697 (Version 2)
Quarter: 2021Q2

REPORT INFORMATION
  Report Type: Report from Study
  Country: IE (occurrence: IE)
  Receive Date: 20210415
  Receipt Date: 20210427
  Transmission Date: 20210717
  Serious: Yes (Death)
  Sender: FDA-Public Use
  Company Number: NVSC2021IE082712

PATIENT
  Sex: Male

DRUGS (1)
  1. BYL719 [Suspect]
     Active Substance: ALPELISIB
     Indication: SQUAMOUS CELL CARCINOMA OF HEAD AND NECK
     Dosage: 300 MG
     Route: 048
     Dates: start: 20201216, end: 20201230

REACTIONS (2)
  - Malignant neoplasm progression [Fatal]
  - Squamous cell carcinoma of head and neck [Fatal]
